FAERS Safety Report 18327906 (Version 1)
Quarter: 2020Q3

REPORT INFORMATION
  Report Type: Spontaneous
  Country: PK (occurrence: PK)
  Receive Date: 20200929
  Receipt Date: 20200929
  Transmission Date: 20201103
  Serious: Yes (Death, Hospitalization)
  Sender: FDA-Public Use
  Company Number: PK-NOVOPROD-755392

PATIENT
  Age: 69 Year
  Sex: Female
  Weight: 95 kg

DRUGS (1)
  1. NOVOMIX 50 FLEXPEN [Suspect]
     Active Substance: INSULIN ASPART
     Indication: TYPE 2 DIABETES MELLITUS
     Dosage: 90 UNITS
     Route: 058
     Dates: start: 20200722, end: 20200903

REACTIONS (4)
  - Hypoglycaemia [Unknown]
  - Myocardial infarction [Fatal]
  - Infection [Unknown]
  - Hypotension [Unknown]

NARRATIVE: CASE EVENT DATE: 20200901
